FAERS Safety Report 4682190-9 (Version None)
Quarter: 2005Q2

REPORT INFORMATION
  Report Type: 
  Country: None (occurrence: None)
  Receive Date: 20050602
  Receipt Date: 20050517
  Transmission Date: 20051028
  Serious: No
  Sender: FDA-Public Use
  Company Number: 11215

PATIENT
  Age: 53 Year
  Sex: Female

DRUGS (1)
  1. METHOTREXATE [Suspect]
     Indication: CENTRAL NERVOUS SYSTEM LYMPHOMA

REACTIONS (3)
  - B-CELL LYMPHOMA RECURRENT [None]
  - METASTASES TO BREAST [None]
  - THERAPY NON-RESPONDER [None]
